FAERS Safety Report 25620709 (Version 1)
Quarter: 2025Q3

REPORT INFORMATION
  Report Type: Spontaneous
  Country: EU (occurrence: EU)
  Receive Date: 20250730
  Receipt Date: 20250730
  Transmission Date: 20251020
  Serious: Yes (Hospitalization)
  Sender: SAMSUNG BIOEPIS
  Company Number: EU-PEI-202500014962

PATIENT
  Age: 19 Year
  Sex: Male

DRUGS (1)
  1. INFLIXIMAB [Suspect]
     Active Substance: INFLIXIMAB
     Indication: Arthritis
     Route: 042
     Dates: start: 20250618

REACTIONS (5)
  - Myopericarditis [Unknown]
  - Left ventricular failure [Not Recovered/Not Resolved]
  - Pericardial effusion [Recovering/Resolving]
  - Pyrexia [Unknown]
  - Chest pain [None]

NARRATIVE: CASE EVENT DATE: 20250623
